FAERS Safety Report 6347389-4 (Version None)
Quarter: 2009Q3

REPORT INFORMATION
  Report Type: 
  Country: None (occurrence: None)
  Receive Date: 20090910
  Receipt Date: 20090902
  Transmission Date: 20100115
  Serious: Yes (Life-Threatening, Hospitalization, Other)
  Sender: FDA-Public Use
  Company Number: US-BAYER-200912529BCC

PATIENT
  Age: 56 Year
  Sex: Male
  Weight: 94 kg

DRUGS (33)
  1. ASPIRIN [Suspect]
     Indication: DRUG USE FOR UNKNOWN INDICATION
     Dosage: TOTAL DAILY DOSE: 81 MG  UNIT DOSE: 81 MG
     Route: 065
  2. PLAVIX [Suspect]
     Indication: DRUG USE FOR UNKNOWN INDICATION
     Dosage: TOTAL DAILY DOSE: 75 MG  UNIT DOSE: 75 MG
     Route: 048
     Dates: start: 20040101
  3. HEPARIN [Suspect]
     Indication: DRUG USE FOR UNKNOWN INDICATION
     Dosage: TOTAL DAILY DOSE: 15000 U
     Route: 065
     Dates: start: 20090710, end: 20090715
  4. SYNTHROID [Suspect]
     Indication: DRUG USE FOR UNKNOWN INDICATION
     Dosage: TOTAL DAILY DOSE: 50 ?G  UNIT DOSE: 50 ?G
     Route: 048
  5. ALEFACEPT [Suspect]
     Indication: RENAL TRANSPLANT
     Route: 042
     Dates: start: 20090712, end: 20090712
  6. ALEFACEPT [Suspect]
     Route: 058
     Dates: start: 20090716, end: 20090719
  7. ALEFACEPT [Suspect]
     Route: 042
     Dates: start: 20090709, end: 20090709
  8. PROGRAF [Suspect]
     Indication: RENAL TRANSPLANT
     Dosage: TOTAL DAILY DOSE: 12 MG
     Route: 048
     Dates: start: 20090726
  9. PROGRAF [Suspect]
     Dosage: TOTAL DAILY DOSE: 20 MG  UNIT DOSE: 10 MG
     Route: 048
     Dates: start: 20090710, end: 20090723
  10. PROGRAF [Suspect]
     Dosage: TOTAL DAILY DOSE: 9 MG  UNIT DOSE: 9 MG
     Route: 048
     Dates: start: 20090709, end: 20090719
  11. PROGRAF [Suspect]
     Dosage: TOTAL DAILY DOSE: 10 MG
     Route: 048
     Dates: start: 20090724, end: 20090725
  12. VALCYTE [Suspect]
     Indication: DRUG USE FOR UNKNOWN INDICATION
     Dosage: TOTAL DAILY DOSE: 1350 MG  UNIT DOSE: 450 MG
     Route: 048
     Dates: start: 20090709
  13. BACTRIM [Suspect]
     Indication: URINARY TRACT INFECTION
     Dosage: TOTAL DAILY DOSE: 1 DF
     Route: 048
     Dates: start: 20090709
  14. ASPIRIN [Suspect]
     Dosage: TOTAL DAILY DOSE: 325 MG  UNIT DOSE: 325 MG
     Route: 065
  15. PREDNISONE TAB [Concomitant]
     Indication: DRUG USE FOR UNKNOWN INDICATION
     Route: 065
     Dates: start: 20090710
  16. AMBIEN [Concomitant]
     Indication: DRUG USE FOR UNKNOWN INDICATION
     Route: 065
  17. PRILOSEC [Concomitant]
     Indication: DRUG USE FOR UNKNOWN INDICATION
     Route: 065
  18. METOPROLOL [Concomitant]
     Indication: DRUG USE FOR UNKNOWN INDICATION
     Route: 065
  19. NORVASC [Concomitant]
     Indication: DRUG USE FOR UNKNOWN INDICATION
     Route: 065
  20. LANTUS [Concomitant]
     Indication: DRUG USE FOR UNKNOWN INDICATION
     Route: 065
  21. CALCIUM CARBONATE [Concomitant]
     Indication: DRUG USE FOR UNKNOWN INDICATION
     Route: 065
  22. DILTIAZEM CD [Concomitant]
     Indication: DRUG USE FOR UNKNOWN INDICATION
     Route: 065
  23. FERROUS GLUCONATE [Concomitant]
     Indication: DRUG USE FOR UNKNOWN INDICATION
     Route: 065
  24. LABETALOL HCL [Concomitant]
     Indication: DRUG USE FOR UNKNOWN INDICATION
     Route: 065
  25. NEPHROCAPS [Concomitant]
     Indication: DRUG USE FOR UNKNOWN INDICATION
     Route: 065
  26. RENAGEL [Concomitant]
     Indication: DRUG USE FOR UNKNOWN INDICATION
     Route: 065
  27. NOVOLOG [Concomitant]
     Indication: DRUG USE FOR UNKNOWN INDICATION
     Route: 065
  28. ROSUVASTATIN CALCIUM [Concomitant]
     Indication: DRUG USE FOR UNKNOWN INDICATION
     Route: 065
  29. DILAUDID [Concomitant]
     Indication: DRUG USE FOR UNKNOWN INDICATION
     Route: 065
  30. DOPAMINE HCL [Concomitant]
     Indication: DRUG USE FOR UNKNOWN INDICATION
     Route: 065
  31. AVAPRO [Concomitant]
     Indication: DRUG USE FOR UNKNOWN INDICATION
     Route: 065
  32. CELLCEPT [Concomitant]
     Dosage: TOTAL DAILY DOSE: 2000 MG
     Route: 065
     Dates: start: 20090719
  33. HYDRALAZINE HCL [Concomitant]
     Route: 065

REACTIONS (8)
  - BLOOD URINE PRESENT [None]
  - HAEMOLYTIC ANAEMIA [None]
  - HYPERHIDROSIS [None]
  - PETECHIAE [None]
  - PYREXIA [None]
  - THROMBOCYTOPENIA [None]
  - TUBULOINTERSTITIAL NEPHRITIS [None]
  - URINE OUTPUT DECREASED [None]
